FAERS Safety Report 25623536 (Version 1)
Quarter: 2025Q3

REPORT INFORMATION
  Report Type: Spontaneous
  Country: US (occurrence: US)
  Receive Date: 20250730
  Receipt Date: 20250730
  Transmission Date: 20251020
  Serious: No
  Sender: ABBVIE
  Company Number: US-ABBVIE-6390088

PATIENT
  Sex: Female

DRUGS (1)
  1. SKYRIZI [Suspect]
     Active Substance: RISANKIZUMAB-RZAA
     Indication: Colitis ulcerative
     Route: 058

REACTIONS (5)
  - Stress [Unknown]
  - Device issue [Not Recovered/Not Resolved]
  - Colitis ulcerative [Unknown]
  - Anxiety [Unknown]
  - Incorrect dose administered [Not Recovered/Not Resolved]
